FAERS Safety Report 9706762 (Version 1)
Quarter: 2013Q4

REPORT INFORMATION
  Report Type: Report from Study
  Country: DE (occurrence: DE)
  Receive Date: 20131125
  Receipt Date: 20131125
  Transmission Date: 20140711
  Serious: No
  Sender: FDA-Public Use
  Company Number: PHHY2013DE134155

PATIENT
  Sex: Male

DRUGS (11)
  1. AMN107 [Suspect]
     Indication: CHRONIC MYELOID LEUKAEMIA
     Dosage: 600 MG, UNK
     Route: 048
     Dates: start: 20120206
  2. BELOZOK [Concomitant]
     Dosage: 95 MG, UNK
  3. NITRENDIPIN [Concomitant]
     Dosage: 10 MG, UNK
  4. ACETYLSALICYLIC ACID [Concomitant]
     Dosage: 100 MG, UNK
  5. SIMVASTATIN [Concomitant]
     Dosage: 20 MG, UNK
  6. DICLOFENAC [Concomitant]
  7. SALMON OIL [Concomitant]
  8. AZITHROMYCIN [Concomitant]
     Dates: start: 20130408, end: 20130610
  9. ANTIBIOTICS [Concomitant]
  10. ACICLOVIR [Concomitant]
     Dosage: 4000 MG, UNK
     Dates: start: 20130725, end: 20130731
  11. LYRICA [Concomitant]
     Dosage: 150 MG, UNK
     Dates: start: 20130805

REACTIONS (1)
  - Nasopharyngitis [Recovered/Resolved]
